FAERS Safety Report 12963968 (Version 1)
Quarter: 2016Q4

REPORT INFORMATION
  Report Type: Report from Study
  Country: BR (occurrence: BR)
  Receive Date: 20161122
  Receipt Date: 20161122
  Transmission Date: 20170207
  Serious: Yes (Other)
  Sender: FDA-Public Use
  Company Number: PHHY2016BR159684

PATIENT
  Sex: Male

DRUGS (1)
  1. TRILEPTAL [Suspect]
     Active Substance: OXCARBAZEPINE
     Indication: SEIZURE
     Dosage: 1 DF, TID (1 AT A TIME, 1 AT 3 PM AND 1 AT BEDTIME)
     Route: 065

REACTIONS (12)
  - Tremor [Unknown]
  - Spinal deformity [Unknown]
  - Malaise [Unknown]
  - Drug dependence [Unknown]
  - Bronchitis [Unknown]
  - Seizure [Unknown]
  - Wrong technique in product usage process [Unknown]
  - Product physical issue [Unknown]
  - Pharyngitis [Unknown]
  - Dysstasia [Unknown]
  - Dysphagia [Unknown]
  - Influenza [Unknown]
